FAERS Safety Report 10277318 (Version 1)
Quarter: 2014Q3

REPORT INFORMATION
  Report Type: Spontaneous
  Country: SE (occurrence: SE)
  Receive Date: 20140703
  Receipt Date: 20140703
  Transmission Date: 20150326
  Serious: Yes (Death, Hospitalization, Other)
  Sender: FDA-Public Use
  Company Number: SE-ABBVIE-14P-150-1254833-00

PATIENT
  Age: 71 Year
  Sex: Female

DRUGS (4)
  1. IMUREL [Concomitant]
     Active Substance: AZATHIOPRINE SODIUM
     Indication: PRODUCT USED FOR UNKNOWN INDICATION
  2. PENTASA [Concomitant]
     Active Substance: MESALAMINE
     Indication: PRODUCT USED FOR UNKNOWN INDICATION
  3. HUMIRA [Suspect]
     Active Substance: ADALIMUMAB
     Indication: COLITIS ULCERATIVE
     Dates: start: 20130530, end: 20131025
  4. PREDNISOLONE. [Concomitant]
     Active Substance: PREDNISOLONE
     Indication: PRODUCT USED FOR UNKNOWN INDICATION

REACTIONS (11)
  - Respiratory failure [Fatal]
  - Lung infiltration [Unknown]
  - Choking [Unknown]
  - Pyrexia [Unknown]
  - Circulatory collapse [Unknown]
  - Colitis [Recovered/Resolved]
  - General physical health deterioration [Recovered/Resolved]
  - Acute respiratory distress syndrome [Unknown]
  - General physical health deterioration [Not Recovered/Not Resolved]
  - Pulmonary tuberculosis [Fatal]
  - Infection [Recovered/Resolved]

NARRATIVE: CASE EVENT DATE: 201310
